FAERS Safety Report 4338706-5 (Version None)
Quarter: 2004Q2

REPORT INFORMATION
  Report Type: 
  Country: None (occurrence: None)
  Receive Date: 20040409
  Receipt Date: 20040326
  Transmission Date: 20050107
  Serious: Yes (Other)
  Sender: FDA-Public Use
  Company Number: 2004-BP-02433BP

PATIENT
  Age: 24 Year
  Sex: Female

DRUGS (4)
  1. VIRAMUNE [Suspect]
     Indication: HIV INFECTION
     Dosage: 200 MG (200 MG, 1 IN 1 D), PO; 400 MG, (200 MG, 2 IN 1 D), PO
     Route: 048
     Dates: start: 20040303, end: 20040317
  2. VIRAMUNE [Suspect]
     Indication: HIV INFECTION
     Dosage: 200 MG (200 MG, 1 IN 1 D), PO; 400 MG, (200 MG, 2 IN 1 D), PO
     Route: 048
     Dates: start: 20040318
  3. LAMIVUDINE (LAMIVUDINE) [Suspect]
     Indication: HIV INFECTION
     Dosage: 300 MG, PO
     Route: 048
     Dates: start: 20040303, end: 20040313
  4. TENOFOVIR (TENOFOVIR) [Suspect]
     Indication: HIV INFECTION
     Dosage: 300 MG PO
     Route: 048
     Dates: start: 20040303, end: 20040313

REACTIONS (7)
  - ABORTION SPONTANEOUS [None]
  - CHORIOAMNIONITIS [None]
  - COMPLICATIONS OF MATERNAL EXPOSURE TO THERAPEUTIC DRUGS [None]
  - INFARCTION [None]
  - MATERNAL DRUGS AFFECTING FOETUS [None]
  - PLACENTAL DISORDER [None]
  - THROMBOSIS [None]
